FAERS Safety Report 4386907-2 (Version None)
Quarter: 2004Q2

REPORT INFORMATION
  Report Type: 
  Country: None (occurrence: None)
  Receive Date: 20040625
  Receipt Date: 20040616
  Transmission Date: 20050107
  Serious: Yes (Other)
  Sender: FDA-Public Use
  Company Number: 2004219985JP

PATIENT

DRUGS (2)
  1. NORPACE [Suspect]
  2. DIGOXIN [Suspect]

REACTIONS (1)
  - VENTRICULAR TACHYCARDIA [None]
